FAERS Safety Report 12401275 (Version 16)
Quarter: 2020Q3

REPORT INFORMATION
  Report Type: Report from Study
  Country: JP (occurrence: JP)
  Receive Date: 20160525
  Receipt Date: 20170707
  Transmission Date: 20201104
  Serious: Yes (Death, Life-Threatening, Hospitalization)
  Sender: FDA-Public Use
  Company Number: JP-JNJFOC-20160520537

PATIENT
  Age: 80 Year
  Sex: Male
  Weight: 45 kg

DRUGS (63)
  1. DARATUMUMAB [Suspect]
     Active Substance: DARATUMUMAB
     Indication: PLASMA CELL MYELOMA
     Route: 042
     Dates: start: 20160517, end: 20160517
  2. PREDNISONE. [Suspect]
     Active Substance: PREDNISONE
     Indication: PLASMA CELL MYELOMA
     Route: 048
     Dates: start: 20160518, end: 20160519
  3. OXYCODONE HYDROCHLORIDE. [Concomitant]
     Active Substance: OXYCODONE HYDROCHLORIDE
     Indication: SPINAL COMPRESSION FRACTURE
     Route: 048
     Dates: start: 20160427, end: 20160519
  4. AMINO ACIDS NOS W/ELECTROLYTES NOS/GLUCOSE/VI [Concomitant]
     Indication: DECREASED APPETITE
     Route: 042
     Dates: start: 20160519, end: 20160622
  5. RINGERSTERIL [Concomitant]
     Indication: DECREASED APPETITE
     Route: 042
     Dates: start: 20160519, end: 20160519
  6. DORIPENEM. [Concomitant]
     Active Substance: DORIPENEM
     Indication: INFECTION PROPHYLAXIS
     Route: 042
     Dates: start: 20160705, end: 20160720
  7. MIDAZOLAM HYDROCHLORIDE. [Concomitant]
     Active Substance: MIDAZOLAM HYDROCHLORIDE
     Indication: SEDATION
     Route: 042
     Dates: start: 20160520, end: 20160523
  8. HEPARIN SODIUM. [Concomitant]
     Active Substance: HEPARIN SODIUM
     Indication: THROMBOSIS PROPHYLAXIS
     Route: 042
     Dates: start: 20160521, end: 20160521
  9. PROPOFOL. [Concomitant]
     Active Substance: PROPOFOL
     Indication: SEDATION
     Route: 042
     Dates: start: 20160704
  10. TRAMADOL HYDROCHLORIDE. [Concomitant]
     Active Substance: TRAMADOL HYDROCHLORIDE
     Indication: SPINAL COMPRESSION FRACTURE
     Route: 048
     Dates: end: 20160519
  11. L?CARBOCYSTEINE [Concomitant]
     Active Substance: CARBOCYSTEINE
     Indication: BRONCHITIS CHRONIC
     Route: 048
     Dates: end: 20160519
  12. ACYCLOVIR. [Concomitant]
     Active Substance: ACYCLOVIR
     Indication: OPPORTUNISTIC INFECTION PROPHYLAXIS
     Route: 042
     Dates: start: 20160520, end: 20160617
  13. OXYCODONE HYDROCHLORIDE. [Concomitant]
     Active Substance: OXYCODONE HYDROCHLORIDE
     Indication: SPINAL COMPRESSION FRACTURE
     Route: 055
     Dates: start: 20160522
  14. FLURBIPROFEN AXETIL [Concomitant]
     Active Substance: FLURBIPROFEN AXETIL
     Indication: INTERVERTEBRAL DISC COMPRESSION
     Route: 042
     Dates: start: 20160524, end: 20160525
  15. PROCHLORPERAZINE MESILATE [Concomitant]
     Indication: NAUSEA
     Route: 048
     Dates: end: 20160519
  16. OXYCODONE HYDROCHLORIDE. [Concomitant]
     Active Substance: OXYCODONE HYDROCHLORIDE
     Indication: SPINAL COMPRESSION FRACTURE
     Route: 048
     Dates: end: 20160517
  17. SENNOSIDE [Concomitant]
     Active Substance: SENNOSIDES
     Indication: CONSTIPATION
     Route: 048
     Dates: start: 20160427, end: 20160519
  18. METOCLOPRAMIDE. [Concomitant]
     Active Substance: METOCLOPRAMIDE
     Indication: NAUSEA
     Route: 048
     Dates: start: 20160516, end: 20160519
  19. TRIMETHOPRIM. [Concomitant]
     Active Substance: TRIMETHOPRIM
     Indication: OPPORTUNISTIC INFECTION
     Route: 048
     Dates: start: 20160517, end: 20160518
  20. HEPARINOID [Concomitant]
     Active Substance: CHONDROITIN SULFATE (BOVINE)
     Indication: ECZEMA ASTEATOTIC
     Dates: start: 20160514
  21. AMINO ACIDS NOS W/ELECTROLYTES NOS/GLUCOSE/VI [Concomitant]
     Indication: DECREASED APPETITE
     Route: 042
     Dates: start: 20160703
  22. DORIPENEM. [Concomitant]
     Active Substance: DORIPENEM
     Indication: INFECTION PROPHYLAXIS
     Route: 042
     Dates: start: 20160521, end: 20160529
  23. MIDAZOLAM HYDROCHLORIDE. [Concomitant]
     Active Substance: MIDAZOLAM HYDROCHLORIDE
     Indication: SEDATION
     Route: 042
     Dates: start: 20160520, end: 20160523
  24. HEPARIN SODIUM. [Concomitant]
     Active Substance: HEPARIN SODIUM
     Indication: THROMBOSIS PROPHYLAXIS
     Route: 042
     Dates: start: 20160522, end: 20160523
  25. BISOPROLOL [Concomitant]
     Active Substance: BISOPROLOL
     Indication: TACHYCARDIA
     Route: 061
     Dates: start: 20160522, end: 20160530
  26. REBAMIPIDE [Concomitant]
     Active Substance: REBAMIPIDE
     Indication: CHRONIC GASTRITIS
     Route: 048
     Dates: end: 20160519
  27. PREGABALIN. [Concomitant]
     Active Substance: PREGABALIN
     Indication: SCIATICA
     Route: 048
     Dates: end: 20160519
  28. SODIUM GUALENATE HYDRATE [Concomitant]
     Active Substance: SODIUM GUALENATE MONOHYDRATE
     Indication: PERIODONTAL DISEASE
     Route: 061
  29. DORIPENEM. [Concomitant]
     Active Substance: DORIPENEM
     Indication: PNEUMONIA
     Route: 042
     Dates: start: 20160519, end: 20160521
  30. DOPAMINE HYDROCHLORIDE. [Concomitant]
     Active Substance: DOPAMINE HYDROCHLORIDE
     Indication: TACHYCARDIA
     Route: 042
     Dates: start: 20160520, end: 20160520
  31. GLUCOSE W/SODIUM CHLORIDE [Concomitant]
     Indication: TACHYCARDIA
     Route: 042
     Dates: start: 20160521, end: 20160521
  32. OXYGEN. [Concomitant]
     Active Substance: OXYGEN
     Indication: DYSPNOEA
     Dates: start: 20160514, end: 20160519
  33. VELCADE [Suspect]
     Active Substance: BORTEZOMIB
     Indication: PLASMA CELL MYELOMA
     Route: 058
     Dates: start: 20160517, end: 20160517
  34. MECOBALAMIN [Concomitant]
     Active Substance: METHYLCOBALAMIN
     Indication: SCIATICA
     Route: 048
     Dates: end: 20160519
  35. CILOSTAZOL. [Concomitant]
     Active Substance: CILOSTAZOL
     Indication: SUPRAVENTRICULAR EXTRASYSTOLES
     Route: 048
     Dates: end: 20160519
  36. RINGERSTERIL [Concomitant]
     Indication: DECREASED APPETITE
     Route: 042
     Dates: start: 20160520, end: 20160520
  37. DORIPENEM. [Concomitant]
     Active Substance: DORIPENEM
     Indication: PNEUMONIA
     Route: 042
     Dates: start: 20160705, end: 20160720
  38. DORIPENEM. [Concomitant]
     Active Substance: DORIPENEM
     Indication: INFECTION PROPHYLAXIS
     Route: 042
     Dates: start: 20160519, end: 20160521
  39. LANDIOLOL HYDROCHLORIDE [Concomitant]
     Active Substance: LANDIOLOL HYDROCHLORIDE
     Indication: TACHYCARDIA
     Route: 042
     Dates: start: 20160521, end: 20160521
  40. MELPHALAN. [Suspect]
     Active Substance: MELPHALAN
     Indication: PLASMA CELL MYELOMA
     Route: 048
     Dates: start: 20160517, end: 20160519
  41. AMBROXOL HYDROCHLORIDE [Concomitant]
     Active Substance: AMBROXOL HYDROCHLORIDE
     Indication: SPINAL COMPRESSION FRACTURE
     Route: 048
     Dates: end: 20160519
  42. GLIMEPIRIDE. [Concomitant]
     Active Substance: GLIMEPIRIDE
     Indication: TYPE 2 DIABETES MELLITUS
     Route: 048
     Dates: end: 20160519
  43. SULFAMETHOXAZOLE [Concomitant]
     Active Substance: SULFAMETHOXAZOLE
     Indication: OPPORTUNISTIC INFECTION
     Route: 048
     Dates: start: 20160517, end: 20160518
  44. DORIPENEM. [Concomitant]
     Active Substance: DORIPENEM
     Indication: PNEUMONIA
     Route: 042
     Dates: start: 20160521, end: 20160529
  45. MICAFUNGIN SODIUM [Concomitant]
     Active Substance: MICAFUNGIN SODIUM
     Indication: INFECTION PROPHYLAXIS
     Route: 042
     Dates: start: 20160520
  46. INSULIN HUMAN [Concomitant]
     Active Substance: INSULIN HUMAN
     Indication: TYPE 2 DIABETES MELLITUS
     Route: 042
     Dates: start: 20160520, end: 20160528
  47. HALOPERIDOL. [Concomitant]
     Active Substance: HALOPERIDOL
     Indication: DELIRIUM
     Route: 042
     Dates: start: 20160520, end: 20160520
  48. FLURBIPROFEN AXETIL [Concomitant]
     Active Substance: FLURBIPROFEN AXETIL
     Indication: INTERVERTEBRAL DISC COMPRESSION
     Route: 042
     Dates: start: 20160705, end: 20160707
  49. SODIUM RABEPRAZOLE [Concomitant]
     Active Substance: RABEPRAZOLE SODIUM
     Indication: TYPE 2 DIABETES MELLITUS
     Route: 048
     Dates: end: 20160519
  50. ACYCLOVIR. [Concomitant]
     Active Substance: ACYCLOVIR
     Indication: OPPORTUNISTIC INFECTION
     Route: 048
     Dates: start: 20160517, end: 20160519
  51. ZOLEDRONIC ACID [Concomitant]
     Active Substance: ZOLEDRONIC ACID
     Indication: BONE LESION
     Route: 042
     Dates: start: 20160516, end: 20160715
  52. DARATUMUMAB [Suspect]
     Active Substance: DARATUMUMAB
     Route: 042
  53. OXYCODONE HYDROCHLORIDE. [Concomitant]
     Active Substance: OXYCODONE HYDROCHLORIDE
     Indication: SPINAL COMPRESSION FRACTURE
     Route: 048
     Dates: start: 20160518, end: 20160519
  54. WHITE PETROLATUM [Concomitant]
     Active Substance: PETROLATUM
     Indication: ECZEMA ASTEATOTIC
     Route: 061
  55. MAGNESIUM OXIDE. [Concomitant]
     Active Substance: MAGNESIUM OXIDE
     Indication: CONSTIPATION
     Route: 048
     Dates: end: 20160519
  56. FAMOTIDINE. [Concomitant]
     Active Substance: FAMOTIDINE
     Indication: GASTRITIS
     Route: 042
     Dates: start: 20160520, end: 20160520
  57. OXYCODONE HYDROCHLORIDE. [Concomitant]
     Active Substance: OXYCODONE HYDROCHLORIDE
     Indication: SPINAL COMPRESSION FRACTURE
     Route: 042
     Dates: start: 20160520, end: 20160520
  58. HALOPERIDOL. [Concomitant]
     Active Substance: HALOPERIDOL
     Indication: DELIRIUM
     Route: 042
     Dates: start: 20160524, end: 20160524
  59. VERAPAMIL HYDROCHLORIDE. [Concomitant]
     Active Substance: VERAPAMIL HYDROCHLORIDE
     Indication: TACHYCARDIA
     Route: 042
     Dates: start: 20160520, end: 20160520
  60. DOPAMINE HYDROCHLORIDE. [Concomitant]
     Active Substance: DOPAMINE HYDROCHLORIDE
     Indication: TACHYCARDIA
     Route: 042
     Dates: start: 20160522, end: 20160523
  61. ADENOSINE. [Concomitant]
     Active Substance: ADENOSINE
     Indication: TACHYCARDIA
     Route: 042
     Dates: start: 20160521, end: 20160521
  62. OMEPRAZOLE. [Concomitant]
     Active Substance: OMEPRAZOLE
     Indication: GASTRITIS
     Route: 042
     Dates: start: 20160521, end: 20160525
  63. PROPOFOL. [Concomitant]
     Active Substance: PROPOFOL
     Indication: SEDATION
     Route: 042
     Dates: start: 20160523, end: 20160524

REACTIONS (1)
  - Acute respiratory failure [Fatal]

NARRATIVE: CASE EVENT DATE: 20160519
